FAERS Safety Report 19769665 (Version 1)
Quarter: 2021Q3

REPORT INFORMATION
  Report Type: Spontaneous
  Country: CL (occurrence: CL)
  Receive Date: 20210831
  Receipt Date: 20210831
  Transmission Date: 20211014
  Serious: Yes (Other)
  Sender: FDA-Public Use
  Company Number: CL-ROCHE-2893239

PATIENT
  Age: 61 Year
  Sex: Male

DRUGS (1)
  1. RAVOTRIL [Suspect]
     Active Substance: CLONAZEPAM
     Indication: PANIC ATTACK
     Dosage: TOOK ONE
     Route: 065

REACTIONS (5)
  - Alcohol poisoning [Unknown]
  - Aggression [Unknown]
  - Nervousness [Unknown]
  - Gait disturbance [Unknown]
  - Alcohol interaction [Unknown]

NARRATIVE: CASE EVENT DATE: 20210815
